FAERS Safety Report 19370859 (Version 1)
Quarter: 2021Q2

REPORT INFORMATION
  Report Type: Spontaneous
  Country: AT (occurrence: AT)
  Receive Date: 20210603
  Receipt Date: 20210603
  Transmission Date: 20210717
  Serious: Yes (Other)
  Sender: FDA-Public Use
  Company Number: AT-LUPIN PHARMACEUTICALS INC.-2021-08289

PATIENT
  Age: 16 Year
  Sex: Female

DRUGS (15)
  1. METHYLPREDNISOLONE. [Suspect]
     Active Substance: METHYLPREDNISOLONE
     Dosage: UNK (TAPERING THE DOSE BY A HALF EVERY FIFTH DAY) STOPPED IN MAR?2017
     Route: 048
  2. LAMOTRIGINE. [Suspect]
     Active Substance: LAMOTRIGINE
     Indication: MIGRAINE WITH AURA
     Dosage: 125 MILLIGRAM
     Route: 065
     Dates: start: 201608, end: 2017
  3. TOPIRAMAT [Suspect]
     Active Substance: TOPIRAMATE
     Indication: MIGRAINE WITH AURA
     Dosage: 100 MILLIGRAM, QD, THERAPY END DATE: 2015
     Route: 065
     Dates: start: 2015
  4. VALPROIC ACID. [Concomitant]
     Active Substance: VALPROIC ACID
     Indication: MIGRAINE WITH AURA
  5. FLUNARIZINE [Concomitant]
     Active Substance: FLUNARIZINE
     Indication: MIGRAINE WITH AURA
     Dosage: 10 MILLIGRAM, QD
     Route: 065
     Dates: start: 201708, end: 201711
  6. DRONABINOL. [Concomitant]
     Active Substance: DRONABINOL
     Indication: MIGRAINE WITH AURA
     Dosage: 2.5 MILLIGRAM, THERAPY END DATE: 2018
     Route: 065
     Dates: start: 201802
  7. LEVETIRACETAM. [Suspect]
     Active Substance: LEVETIRACETAM
     Indication: MIGRAINE WITH AURA
     Dosage: 500 MILLIGRAM
     Route: 065
     Dates: start: 201711
  8. PREGABALIN. [Suspect]
     Active Substance: PREGABALIN
     Indication: MIGRAINE WITH AURA
     Dosage: 50 MILLIGRAM, QD, DIVIDED INTO TWO SINGLE DOSES, THERAPY END DATE: 2017
     Route: 065
     Dates: start: 201705
  9. VALPROIC ACID. [Concomitant]
     Active Substance: VALPROIC ACID
     Indication: DEPRESSION
     Dosage: 1000 MILLIGRAM, QD
     Route: 065
     Dates: start: 201706, end: 201708
  10. LEVETIRACETAM. [Suspect]
     Active Substance: LEVETIRACETAM
     Dosage: UNK, TITRATED WITHIN 6 WEEKS
     Route: 065
  11. LAMOTRIGINE. [Suspect]
     Active Substance: LAMOTRIGINE
     Dosage: START DATE: 2017, 200 MILLIGRAM, INCREASED BY 25 MG EVERY 1?2 WEEKS, THERAPY END DATE: 2017
     Route: 065
  12. ZONISAMIDE. [Concomitant]
     Active Substance: ZONISAMIDE
     Indication: MIGRAINE WITH AURA
     Dosage: UNK
     Route: 065
     Dates: start: 2018
  13. LEVETIRACETAM. [Suspect]
     Active Substance: LEVETIRACETAM
     Dosage: 2 GRAM STOPPED IN 2018
     Route: 065
  14. PREGABALIN. [Suspect]
     Active Substance: PREGABALIN
     Dosage: UNK, SLOWLY TITRATED UP TO A DAILY DOSE OF 250, THERAPY END DATE: 2017
     Route: 065
  15. METHYLPREDNISOLONE. [Suspect]
     Active Substance: METHYLPREDNISOLONE
     Indication: MIGRAINE WITH AURA
     Dosage: 80 MILLIGRAM, QD
     Route: 048
     Dates: start: 201702

REACTIONS (5)
  - Disturbance in attention [Unknown]
  - Weight increased [Unknown]
  - Drug ineffective [Unknown]
  - Aphasia [Unknown]
  - Behaviour disorder [Unknown]

NARRATIVE: CASE EVENT DATE: 2015
